FAERS Safety Report 23860614 (Version 3)
Quarter: 2025Q1

REPORT INFORMATION
  Report Type: Spontaneous
  Country: US (occurrence: US)
  Receive Date: 20240516
  Receipt Date: 20250203
  Transmission Date: 20250409
  Serious: Yes (Other)
  Sender: BRISTOL-MYERS SQUIBB COMPANY
  Company Number: US-BRISTOL-MYERS SQUIBB COMPANY-2024-074828

PATIENT
  Age: 79 Year
  Sex: Female
  Weight: 51.3 kg

DRUGS (1)
  1. POMALYST [Suspect]
     Active Substance: POMALIDOMIDE
     Indication: Plasma cell myeloma
     Dosage: ONCE DAILY
     Route: 048
     Dates: start: 20240401

REACTIONS (3)
  - Bell^s palsy [Unknown]
  - Arthralgia [Unknown]
  - Drug ineffective [Recovering/Resolving]
